FAERS Safety Report 7502943-9 (Version None)
Quarter: 2011Q2

REPORT INFORMATION
  Report Type: 
  Country: None (occurrence: None)
  Receive Date: 20110518
  Receipt Date: 20110503
  Transmission Date: 20111010
  Serious: Yes (Other)
  Sender: FDA-Public Use
  Company Number: AUR-APL-2011-01578

PATIENT
  Age: 5 Year
  Sex: Female
  Weight: 19.5 kg

DRUGS (14)
  1. CITALOPRAM HYDROBROMIDE [Suspect]
     Indication: ANXIETY
     Dosage: 15MG-DAILY
  2. CITALOPRAM HYDROBROMIDE [Suspect]
     Indication: ATTENTION DEFICIT/HYPERACTIVITY DISORDER
     Dosage: 15MG-DAILY
  3. CITALOPRAM HYDROBROMIDE [Suspect]
     Indication: OBSESSIVE-COMPULSIVE DISORDER
     Dosage: 15MG-DAILY
  4. CITALOPRAM HYDROBROMIDE [Suspect]
     Indication: OBSESSIVE-COMPULSIVE DISORDER
     Dosage: 20MG-DAILY
     Dates: start: 20110411
  5. CITALOPRAM HYDROBROMIDE [Suspect]
     Indication: ANXIETY
     Dosage: 20MG-DAILY
     Dates: start: 20110411
  6. CITALOPRAM HYDROBROMIDE [Suspect]
     Indication: ATTENTION DEFICIT/HYPERACTIVITY DISORDER
     Dosage: 20MG-DAILY
     Dates: start: 20110411
  7. CITALOPRAM HYDROBROMIDE [Suspect]
     Indication: ATTENTION DEFICIT/HYPERACTIVITY DISORDER
     Dosage: 15MG-DAILY
  8. CITALOPRAM HYDROBROMIDE [Suspect]
     Indication: OBSESSIVE-COMPULSIVE DISORDER
     Dosage: 15MG-DAILY
  9. CITALOPRAM HYDROBROMIDE [Suspect]
     Indication: ANXIETY
     Dosage: 15MG-DAILY
  10. CITALOPRAM HYDROBROMIDE [Suspect]
     Indication: ANXIETY
     Dosage: 20 MG-DAILY
  11. CITALOPRAM HYDROBROMIDE [Suspect]
     Indication: OBSESSIVE-COMPULSIVE DISORDER
     Dosage: 20 MG-DAILY
  12. CITALOPRAM HYDROBROMIDE [Suspect]
     Indication: ATTENTION DEFICIT/HYPERACTIVITY DISORDER
     Dosage: 10MG-DAILY-ORAL
     Route: 048
     Dates: start: 20100101
  13. CITALOPRAM HYDROBROMIDE [Suspect]
     Indication: ANXIETY
     Dosage: 10MG-DAILY-ORAL
     Route: 048
     Dates: start: 20100101
  14. CITALOPRAM HYDROBROMIDE [Suspect]
     Indication: OBSESSIVE-COMPULSIVE DISORDER
     Dosage: 10MG-DAILY-ORAL
     Route: 048
     Dates: start: 20100101

REACTIONS (6)
  - DRUG DISPENSING ERROR [None]
  - PRODUCT QUALITY ISSUE [None]
  - PRODUCT SHAPE ISSUE [None]
  - AGGRESSION [None]
  - CRYING [None]
  - ABNORMAL BEHAVIOUR [None]
